FAERS Safety Report 15576028 (Version 1)
Quarter: 2018Q4

REPORT INFORMATION
  Report Type: Spontaneous
  Country: GB (occurrence: GB)
  Receive Date: 20181101
  Receipt Date: 20181101
  Transmission Date: 20190205
  Serious: Yes (Hospitalization, Other)
  Sender: FDA-Public Use
  Company Number: GB-TEVA-2018-GB-970824

PATIENT
  Age: 38 Year
  Sex: Male

DRUGS (2)
  1. COCODAMOL [Concomitant]
     Active Substance: ACETAMINOPHEN\CODEINE PHOSPHATE
     Dosage: 30MG/500MG. 1-2  UP TO FOUR TIMES DAILY
     Route: 065
     Dates: start: 20180924
  2. NAPROXEN. [Suspect]
     Active Substance: NAPROXEN
     Indication: CHEST INJURY
     Dosage: 1000 MILLIGRAM DAILY;
     Route: 048
     Dates: start: 20180828, end: 20181002

REACTIONS (1)
  - Swelling face [Recovering/Resolving]

NARRATIVE: CASE EVENT DATE: 20181002
